FAERS Safety Report 15639180 (Version 1)
Quarter: 2018Q4

REPORT INFORMATION
  Report Type: Spontaneous
  Country: US (occurrence: US)
  Receive Date: 20181120
  Receipt Date: 20181120
  Transmission Date: 20190205
  Serious: No
  Sender: FDA-Public Use
  Company Number: US-JNJFOC-20180332111

PATIENT
  Sex: Female

DRUGS (13)
  1. ADVIL [Concomitant]
     Active Substance: IBUPROFEN
  2. DEXTRIN [Concomitant]
     Active Substance: ICODEXTRIN
  3. CITALOPRAM [Concomitant]
     Active Substance: CITALOPRAM HYDROBROMIDE
  4. BENADRYL [Concomitant]
     Active Substance: DIPHENHYDRAMINE HYDROCHLORIDE
  5. IMBRUVICA [Suspect]
     Active Substance: IBRUTINIB
     Indication: WALDENSTROM^S MACROGLOBULINAEMIA
     Route: 048
  6. CLONAZEPAM. [Concomitant]
     Active Substance: CLONAZEPAM
  7. TYLENOL [Concomitant]
     Active Substance: ACETAMINOPHEN
  8. PREVACID [Concomitant]
     Active Substance: LANSOPRAZOLE
  9. AZELASTINE. [Concomitant]
     Active Substance: AZELASTINE HYDROCHLORIDE
  10. CORTISONE [Concomitant]
     Active Substance: CORTISONE\HYDROCORTISONE
  11. FLONASE [Concomitant]
     Active Substance: FLUTICASONE PROPIONATE
  12. BACITRACIN W/NEOMYCIN/POLYMYXIN B [Concomitant]
     Active Substance: BACITRACIN\NEOMYCIN\POLYMYXIN B
  13. BENZOYL PEROXIDE. [Concomitant]
     Active Substance: BENZOYL PEROXIDE

REACTIONS (1)
  - Myalgia [Unknown]
